FAERS Safety Report 23557693 (Version 3)
Quarter: 2024Q3

REPORT INFORMATION
  Report Type: Spontaneous
  Country: US (occurrence: US)
  Receive Date: 20240223
  Receipt Date: 20240819
  Transmission Date: 20241017
  Serious: No
  Sender: BIOCON
  Company Number: US-BIOCON BIOLOGICS LIMITED-BBL2023001364

PATIENT

DRUGS (1)
  1. SEMGLEE (INSULIN GLARGINE-YFGN) [Suspect]
     Active Substance: INSULIN GLARGINE-YFGN
     Indication: Diabetes mellitus
     Dosage: 45 UNITS DURING THE DAY AND 43 UNITS AT NIGHT, 2 YEARS AGO
     Route: 065

REACTIONS (2)
  - Device breakage [Unknown]
  - Incorrect dose administered [Unknown]
